FAERS Safety Report 22107976 (Version 2)
Quarter: 2023Q1

REPORT INFORMATION
  Report Type: Spontaneous
  Country: GB (occurrence: GB)
  Receive Date: 20230317
  Receipt Date: 20230330
  Transmission Date: 20230417
  Serious: Yes (Other)
  Sender: FDA-Public Use
  Company Number: GB-MHRA-MED-202303061735516590-PBZFG

PATIENT
  Age: 34 Year
  Sex: Female
  Weight: 100 kg

DRUGS (1)
  1. HUMAN IMMUNOGLOBULIN G [Suspect]
     Active Substance: HUMAN IMMUNOGLOBULIN G
     Indication: Product used for unknown indication
     Dosage: UNK
     Route: 065

REACTIONS (4)
  - Hypertensive crisis [Recovered/Resolved]
  - Acute coronary syndrome [Recovering/Resolving]
  - Electrocardiogram ST segment elevation [Recovering/Resolving]
  - Brain oedema [Unknown]

NARRATIVE: CASE EVENT DATE: 20230306
